FAERS Safety Report 5794620-X (Version None)
Quarter: 2008Q2

REPORT INFORMATION
  Report Type: 
  Country: None (occurrence: None)
  Receive Date: 20080627
  Receipt Date: 20080627
  Transmission Date: 20081010
  Serious: Yes (Hospitalization)
  Sender: FDA-Public Use
  Company Number: None

PATIENT
  Sex: Female
  Weight: 57.1532 kg

DRUGS (6)
  1. BACTRIM [Suspect]
     Indication: OTITIS MEDIA CHRONIC
     Dosage: PO  X 1 MONTH
     Route: 048
  2. PREMARIN [Concomitant]
  3. SYNTHROID [Concomitant]
  4. COZAAR [Concomitant]
  5. ATENOLOL [Concomitant]
  6. SIMVASTATIN [Concomitant]

REACTIONS (4)
  - ANOREXIA [None]
  - FATIGUE [None]
  - PRURITUS [None]
  - WEIGHT DECREASED [None]
